FAERS Safety Report 7211238-2 (Version None)
Quarter: 2011Q1

REPORT INFORMATION
  Report Type: 
  Country: None (occurrence: None)
  Receive Date: 20110105
  Receipt Date: 20101229
  Transmission Date: 20110831
  Serious: Yes (Other)
  Sender: FDA-Public Use
  Company Number: DE-JNJFOC-20101105808

PATIENT
  Sex: Male

DRUGS (1)
  1. ITRACOL HEXAL [Suspect]
     Indication: FUNGAL INFECTION
     Route: 048
     Dates: end: 20100301

REACTIONS (2)
  - POLYNEUROPATHY [None]
  - MYOCLONUS [None]
